FAERS Safety Report 7151712-0 (Version None)
Quarter: 2010Q4

REPORT INFORMATION
  Report Type: 
  Country: None (occurrence: None)
  Receive Date: 20101210
  Receipt Date: 20101130
  Transmission Date: 20110411
  Serious: Yes (Other)
  Sender: FDA-Public Use
  Company Number: PHHY2010CA82037

PATIENT

DRUGS (1)
  1. ALISKIREN ALI+ [Suspect]
     Dosage: EVERY DAY

REACTIONS (2)
  - GASTRIC CANCER [None]
  - LIVER OPERATION [None]
